FAERS Safety Report 5152985-6 (Version None)
Quarter: 2006Q4

REPORT INFORMATION
  Report Type: 
  Country: None (occurrence: None)
  Receive Date: 20061117
  Receipt Date: 20061113
  Transmission Date: 20070319
  Serious: Yes (Death)
  Sender: FDA-Public Use
  Company Number: 2006UW24384

PATIENT
  Sex: Female

DRUGS (3)
  1. SEROQUEL [Suspect]
     Route: 048
     Dates: start: 20060919, end: 20060926
  2. SEROQUEL [Suspect]
     Route: 048
     Dates: start: 20060927, end: 20061016
  3. SEROQUEL [Suspect]
     Route: 048
     Dates: start: 20061017, end: 20061018

REACTIONS (1)
  - CONVULSION [None]
